FAERS Safety Report 6764012-5 (Version None)
Quarter: 2010Q2

REPORT INFORMATION
  Report Type: 
  Country: None (occurrence: None)
  Receive Date: 20100610
  Receipt Date: 20091013
  Transmission Date: 20101027
  Serious: No
  Sender: FDA-Public Use
  Company Number: US-ASTRAZENECA-2009SE19956

PATIENT
  Age: 24292 Day
  Sex: Female
  Weight: 56.7 kg

DRUGS (4)
  1. FASLODEX [Suspect]
     Indication: BREAST CANCER
     Dosage: MONTHLY
     Route: 030
     Dates: start: 20090801
  2. ARIMIDEX [Concomitant]
     Indication: BREAST CANCER
  3. PRILOSEC [Concomitant]
  4. PEPCID [Concomitant]

REACTIONS (3)
  - ASTHENIA [None]
  - BALANCE DISORDER [None]
  - FATIGUE [None]
